FAERS Safety Report 12200979 (Version 1)
Quarter: 2016Q1

REPORT INFORMATION
  Report Type: Spontaneous
  Country: PL (occurrence: PL)
  Receive Date: 20160322
  Receipt Date: 20160322
  Transmission Date: 20160526
  Serious: Yes (Other)
  Sender: FDA-Public Use
  Company Number: PL-BAYER-2016-051007

PATIENT
  Age: 71 Year
  Sex: Female
  Weight: 66 kg

DRUGS (1)
  1. GADOVIST [Suspect]
     Active Substance: GADOBUTROL
     Dosage: 7.5 ML, UNK
     Route: 042
     Dates: start: 20160124, end: 20160124

REACTIONS (5)
  - Sneezing [Recovered/Resolved]
  - Eyelid oedema [Recovered/Resolved]
  - Lacrimation increased [Recovered/Resolved]
  - Rash generalised [Recovered/Resolved]
  - Rhinorrhoea [Recovered/Resolved]

NARRATIVE: CASE EVENT DATE: 20160124
